FAERS Safety Report 13445824 (Version 1)
Quarter: 2017Q2

REPORT INFORMATION
  Report Type: Spontaneous
  Country: RU (occurrence: RU)
  Receive Date: 20170417
  Receipt Date: 20170417
  Transmission Date: 20170830
  Serious: Yes (Death, Other)
  Sender: FDA-Public Use
  Company Number: RU-ROCHE-1919581

PATIENT
  Age: 32 Year
  Sex: Male

DRUGS (5)
  1. CARBOPLATIN. [Concomitant]
     Active Substance: CARBOPLATIN
     Dosage: 500 MG PER DAY
     Route: 065
     Dates: start: 20161202, end: 20161203
  2. ZELBORAF [Suspect]
     Active Substance: VEMURAFENIB
     Indication: MALIGNANT MELANOMA
     Dosage: 1440 MG PER DAY (3 TABLETS TWICE A DAY)
     Route: 048
     Dates: start: 201609
  3. ZELBORAF [Suspect]
     Active Substance: VEMURAFENIB
     Indication: BRAF GENE MUTATION
     Dosage: 1920 MG PER DAY (4 TABLETS TWICE A DAY)
     Route: 048
     Dates: start: 20160714, end: 201608
  4. TAXACAD [Concomitant]
     Dosage: 250MG PER DAY
     Route: 065
     Dates: start: 20161202, end: 20161203
  5. DACARBAZINE. [Concomitant]
     Active Substance: DACARBAZINE
     Dosage: 1600MG EVERY 3 WEEKS (3 COURSES TOTALLY)
     Route: 065
     Dates: start: 20160514, end: 20160629

REACTIONS (3)
  - Hepatotoxicity [Recovering/Resolving]
  - Death [Fatal]
  - Rash [Unknown]

NARRATIVE: CASE EVENT DATE: 201608
